FAERS Safety Report 9384061 (Version 19)
Quarter: 2016Q1

REPORT INFORMATION
  Report Type: Report from Study
  Country: CA (occurrence: CA)
  Receive Date: 20130705
  Receipt Date: 20160323
  Transmission Date: 20160526
  Serious: Yes (Hospitalization, Other)
  Sender: FDA-Public Use
  Company Number: CA-ROCHE-1183652

PATIENT
  Age: 49 Year
  Sex: Female
  Weight: 55 kg

DRUGS (16)
  1. ACTEMRA [Suspect]
     Active Substance: TOCILIZUMAB
     Indication: STILL^S DISEASE ADULT ONSET
     Route: 042
     Dates: start: 20121205
  2. CLINDAMYCIN [Suspect]
     Active Substance: CLINDAMYCIN\CLINDAMYCIN PHOSPHATE
     Indication: CELLULITIS
     Route: 048
     Dates: start: 201502, end: 201502
  3. ARAVA [Concomitant]
     Active Substance: LEFLUNOMIDE
     Route: 065
     Dates: start: 201401, end: 201401
  4. PREDNISONE. [Suspect]
     Active Substance: PREDNISONE
     Dosage: DAILY
     Route: 065
  5. MACROBID [Suspect]
     Active Substance: NITROFURANTOIN\NITROFURANTOIN MONOHYDRATE
     Indication: URINARY TRACT INFECTION
     Route: 065
     Dates: start: 20130404, end: 20130404
  6. CYMBALTA [Concomitant]
     Active Substance: DULOXETINE HYDROCHLORIDE
     Route: 065
     Dates: start: 201402
  7. ALLEGRA [Concomitant]
     Active Substance: FEXOFENADINE HYDROCHLORIDE
     Route: 065
     Dates: start: 20140205
  8. AERIUS (CANADA) [Concomitant]
     Route: 048
     Dates: start: 20130726
  9. ACTEMRA [Suspect]
     Active Substance: TOCILIZUMAB
     Route: 042
     Dates: start: 20140923
  10. COLCHICINE. [Suspect]
     Active Substance: COLCHICINE
     Indication: PRODUCT USED FOR UNKNOWN INDICATION
     Route: 065
     Dates: start: 201306
  11. CALCIUM CARBONATE. [Concomitant]
     Active Substance: CALCIUM CARBONATE
  12. NAPROSYN [Suspect]
     Active Substance: NAPROXEN
     Indication: PRODUCT USED FOR UNKNOWN INDICATION
     Route: 065
     Dates: start: 201305, end: 201305
  13. RISEDRONATE [Concomitant]
     Active Substance: RISEDRONATE SODIUM
  14. PREDNISONE. [Suspect]
     Active Substance: PREDNISONE
     Indication: PRODUCT USED FOR UNKNOWN INDICATION
     Dosage: DAILY
     Route: 065
  15. OMEGA 3 [Concomitant]
     Active Substance: OMEGA-3 FATTY ACIDS
  16. CELEBREX [Concomitant]
     Active Substance: CELECOXIB

REACTIONS (54)
  - Pericarditis [Unknown]
  - Cellulitis [Unknown]
  - Musculoskeletal discomfort [Not Recovered/Not Resolved]
  - Axillary pain [Not Recovered/Not Resolved]
  - Urinary tract infection [Unknown]
  - Weight increased [Unknown]
  - Lymphadenopathy [Not Recovered/Not Resolved]
  - Tendon rupture [Unknown]
  - Off label use [Unknown]
  - Rash [Unknown]
  - Pruritus [Not Recovered/Not Resolved]
  - Pyrexia [Recovered/Resolved]
  - Nausea [Not Recovered/Not Resolved]
  - Nasopharyngitis [Unknown]
  - Pericarditis [Recovered/Resolved]
  - Chest pain [Recovered/Resolved]
  - Hypersensitivity [Unknown]
  - Peau d^orange [Unknown]
  - Pain [Unknown]
  - Paraesthesia [Unknown]
  - Upper respiratory tract infection [Recovered/Resolved]
  - Pleurisy [Unknown]
  - Arthropathy [Unknown]
  - Eye pain [Not Recovered/Not Resolved]
  - Abdominal tenderness [Not Recovered/Not Resolved]
  - Urticaria [Unknown]
  - White blood cells urine positive [Not Recovered/Not Resolved]
  - Joint range of motion decreased [Unknown]
  - Immunodeficiency [Unknown]
  - Ocular hyperaemia [Not Recovered/Not Resolved]
  - Eye discharge [Not Recovered/Not Resolved]
  - Erythema [Not Recovered/Not Resolved]
  - Seasonal allergy [Unknown]
  - Sinusitis [Recovered/Resolved]
  - Upper respiratory tract infection [Unknown]
  - Eye irritation [Not Recovered/Not Resolved]
  - Swelling [Not Recovered/Not Resolved]
  - Drug hypersensitivity [Unknown]
  - Chills [Recovered/Resolved]
  - Rash [Recovered/Resolved]
  - Sinus congestion [Unknown]
  - Oral herpes [Unknown]
  - Musculoskeletal stiffness [Unknown]
  - Pleural effusion [Unknown]
  - Toothache [Not Recovered/Not Resolved]
  - Chest pain [Not Recovered/Not Resolved]
  - Skin disorder [Not Recovered/Not Resolved]
  - Abdominal discomfort [Not Recovered/Not Resolved]
  - Scab [Not Recovered/Not Resolved]
  - Urticaria [Unknown]
  - Ocular hyperaemia [Not Recovered/Not Resolved]
  - Pain in extremity [Not Recovered/Not Resolved]
  - Acarodermatitis [Unknown]
  - Weight fluctuation [Unknown]

NARRATIVE: CASE EVENT DATE: 2013
